FAERS Safety Report 8855012 (Version 1)
Quarter: 2012Q4

REPORT INFORMATION
  Report Type: 
  Country: IT (occurrence: IT)
  Receive Date: 20121023
  Receipt Date: 20121023
  Transmission Date: 20130627
  Serious: Yes (Hospitalization)
  Sender: FDA-Public Use
  Company Number: PHHY2012IT094160

PATIENT
  Age: 44 Year
  Sex: Male

DRUGS (4)
  1. TASIGNA [Suspect]
     Indication: CHRONIC MYELOID LEUKAEMIA
     Dosage: 400 mg, daily
     Route: 048
     Dates: start: 20120620, end: 20121014
  2. COLCHICINE [Concomitant]
     Indication: GOUT
     Dosage: 0.5 mg, UNK
     Route: 048
     Dates: start: 20120808, end: 20121014
  3. BRUFEN [Concomitant]
     Indication: PAIN
     Dosage: 600 mg, UNK
     Route: 048
     Dates: start: 20121001, end: 20121014
  4. LANSOPRAZOLE [Concomitant]
     Dosage: 40 mg, UNK
     Dates: start: 20121001, end: 20121014

REACTIONS (4)
  - Cardiac disorder [Recovering/Resolving]
  - Haemodynamic instability [Recovering/Resolving]
  - Viral infection [Recovering/Resolving]
  - Pericardial effusion [Recovering/Resolving]
